FAERS Safety Report 7956171 (Version 2)
Quarter: 2013Q1

REPORT INFORMATION
  Report Type: Report from Study
  Country: JP (occurrence: JP)
  Receive Date: 20110523
  Receipt Date: 20130121
  Transmission Date: 20140127
  Serious: Yes (Other)
  Sender: FDA-Public Use
  Company Number: PHHY2011JP40184

PATIENT
  Age: 62 Year
  Sex: Female

DRUGS (5)
  1. AFINITOR [Suspect]
     Indication: METASTATIC RENAL CELL CARCINOMA
     Dosage: 10 MG, DAILY
     Route: 048
     Dates: start: 20110221, end: 20110310
  2. SUNITINIB MALATE [Concomitant]
     Indication: METASTATIC RENAL CELL CARCINOMA
     Route: 048
     Dates: start: 20091120, end: 20110106
  3. MELEX [Concomitant]
     Dosage: 1.5 MG, UNK
     Route: 048
     Dates: start: 20110221, end: 20110427
  4. LIMAS [Concomitant]
     Dosage: 300 MG, UNK
     Route: 048
     Dates: start: 20110221, end: 20110427
  5. TOLEDOMIN [Concomitant]
     Dosage: 75 MG, UNK
     Route: 048
     Dates: start: 20110221, end: 20110427

REACTIONS (3)
  - Nausea [Recovering/Resolving]
  - C-reactive protein increased [Unknown]
  - Dysphoria [Recovering/Resolving]
